FAERS Safety Report 8424670-6 (Version None)
Quarter: 2012Q2

REPORT INFORMATION
  Report Type: 
  Country: None (occurrence: None)
  Receive Date: 20120611
  Receipt Date: 20120601
  Transmission Date: 20120825
  Serious: Yes (Other)
  Sender: FDA-Public Use
  Company Number: US-BIOGENIDEC-2012BI019985

PATIENT
  Age: 60 Year
  Sex: Female
  Weight: 68 kg

DRUGS (15)
  1. MIRAPEX [Concomitant]
     Indication: RESTLESS LEGS SYNDROME
     Route: 048
     Dates: start: 20120521
  2. FOSAMAX [Concomitant]
     Indication: OSTEOPOROSIS
  3. TAMSULOSIN HCL [Concomitant]
     Route: 048
     Dates: start: 20090101
  4. CALCIUM CITRATE [Concomitant]
     Route: 048
     Dates: start: 20090101
  5. BACTRIM [Concomitant]
     Indication: PROPHYLAXIS URINARY TRACT INFECTION
     Route: 048
     Dates: start: 20090101
  6. SINGULAIR [Concomitant]
     Route: 048
     Dates: start: 20090101
  7. LITHIUM [Concomitant]
     Route: 048
     Dates: start: 20090914
  8. ALIGN [Concomitant]
     Indication: CONSTIPATION
     Route: 048
     Dates: start: 20100101
  9. TYSABRI [Suspect]
     Indication: MULTIPLE SCLEROSIS
     Route: 042
     Dates: start: 20090914
  10. VITAMIN D [Concomitant]
     Route: 048
     Dates: start: 20090101
  11. ABILIFY [Concomitant]
     Indication: BIPOLAR DISORDER
     Route: 048
     Dates: start: 20100101
  12. LITHIUM [Concomitant]
     Indication: BIPOLAR DISORDER
     Route: 048
     Dates: start: 20090914
  13. LAMICTAL [Concomitant]
     Indication: BIPOLAR DISORDER
     Dates: start: 20090914
  14. XOPENEX [Concomitant]
     Route: 055
     Dates: start: 20090101
  15. MULTI-VITAMIN [Concomitant]
     Dates: start: 20071001

REACTIONS (1)
  - RENAL FAILURE [None]
